FAERS Safety Report 20695464 (Version 1)
Quarter: 2022Q2

REPORT INFORMATION
  Report Type: Spontaneous
  Country: NL (occurrence: NL)
  Receive Date: 20220411
  Receipt Date: 20220411
  Transmission Date: 20220721
  Serious: No
  Sender: FDA-Public Use
  Company Number: NL-CHEMOCENTRYX, INC.-2022NLCCXI0038

PATIENT

DRUGS (3)
  1. AVACOPAN [Suspect]
     Active Substance: AVACOPAN
     Indication: Granulomatosis with polyangiitis
     Dosage: 60 MG (30 MG, 2 IN 1 D)
     Route: 065
  2. AVACOPAN [Suspect]
     Active Substance: AVACOPAN
     Dosage: 40 MG (20 MG, 2 IN 1 D)
     Route: 065
  3. AVACOPAN [Suspect]
     Active Substance: AVACOPAN
     Dosage: 60 MG (30 MG, 2 IN 1 D)
     Route: 065

REACTIONS (2)
  - Product supply issue [Unknown]
  - Vasculitis [Recovered/Resolved]
